FAERS Safety Report 17889687 (Version 1)
Quarter: 2020Q2

REPORT INFORMATION
  Report Type: Spontaneous
  Country: DE (occurrence: DE)
  Receive Date: 20200612
  Receipt Date: 20200612
  Transmission Date: 20200714
  Serious: Yes (Hospitalization, Other)
  Sender: FDA-Public Use
  Company Number: DE-HRARD-202000441

PATIENT
  Age: 31 Year
  Sex: Female

DRUGS (6)
  1. METYRAPONE [Suspect]
     Active Substance: METYRAPONE
     Indication: HYPERADRENOCORTICISM
     Dosage: TAPERED DOWN WITH HC SUPPLEMENTATION AT POST-PARTUM
  2. METHYLDOPA. [Concomitant]
     Active Substance: METHYLDOPA
     Indication: HYPERTENSION
     Dosage: 500 MG QID
  3. PARACETAMOL [Concomitant]
     Active Substance: ACETAMINOPHEN
     Indication: ANALGESIC THERAPY
  4. POTASSIUM SUPPLEMENTATION [Concomitant]
     Indication: SUPPLEMENTATION THERAPY
     Route: 048
  5. TRAMADOL. [Concomitant]
     Active Substance: TRAMADOL
     Indication: ANALGESIC THERAPY
  6. HYDROCORTISONE. [Concomitant]
     Active Substance: HYDROCORTISONE
     Indication: SUPPLEMENTATION THERAPY

REACTIONS (3)
  - Exposure during pregnancy [Recovered/Resolved]
  - Premature delivery [Recovered/Resolved]
  - Vaginal haemorrhage [Unknown]
